FAERS Safety Report 9422931 (Version 2)
Quarter: 2014Q2

REPORT INFORMATION
  Report Type: Report from Study
  Country: US (occurrence: US)
  Receive Date: 20130726
  Receipt Date: 20140613
  Transmission Date: 20141212
  Serious: Yes (Other)
  Sender: FDA-Public Use
  Company Number: US-ROCHE-1252355

PATIENT
  Sex: Female
  Weight: 73.6 kg

DRUGS (11)
  1. XOLAIR [Suspect]
     Indication: ASTHMA
     Dosage: DATE OF MOST RECENT DOSE: 04/JUN/2014
     Route: 058
  2. DULERA [Concomitant]
     Dosage: 5/100 MICROGRAM/ACTUATION
     Route: 065
  3. TOPIRAMATE [Concomitant]
     Route: 048
  4. CARBATROL [Concomitant]
     Route: 048
  5. PROVENTIL NEBULIZER [Concomitant]
  6. ELAVIL (UNITED STATES) [Concomitant]
     Route: 048
  7. ZYRTEC [Concomitant]
     Route: 048
  8. FLONASE NASAL SPRAY [Concomitant]
  9. EPIPEN [Concomitant]
     Dosage: 0.3 MG/0.3 ML
     Route: 065
  10. KEPPRA [Concomitant]
  11. PRILOSEC [Concomitant]
     Route: 048

REACTIONS (11)
  - Convulsion [Unknown]
  - Otitis media chronic [Unknown]
  - Sleep apnoea syndrome [Unknown]
  - Headache [Unknown]
  - Upper respiratory tract infection [Recovered/Resolved]
  - Nasal congestion [Recovered/Resolved]
  - Rhinorrhoea [Recovered/Resolved]
  - Tympanic membrane hyperaemia [Not Recovered/Not Resolved]
  - Pharyngeal erythema [Recovered/Resolved]
  - Pharyngeal disorder [Recovered/Resolved]
  - Hyperlipidaemia [Unknown]
